FAERS Safety Report 24644047 (Version 1)
Quarter: 2024Q4

REPORT INFORMATION
  Report Type: Spontaneous
  Country: NL (occurrence: NL)
  Receive Date: 20241120
  Receipt Date: 20241120
  Transmission Date: 20250115
  Serious: Yes (Other)
  Sender: TEVA
  Company Number: None

PATIENT
  Age: 79 Year
  Sex: Male
  Weight: 84 kg

DRUGS (3)
  1. GEMCITABINE [Suspect]
     Active Substance: GEMCITABINE
     Indication: Malignant neoplasm papilla of Vater
     Dosage: GEMCITABINE INFUUS/ BRAND NAME NOT SPECIFIED
     Route: 065
     Dates: start: 20241018
  2. CISPLATIN [Suspect]
     Active Substance: CISPLATIN
     Indication: Malignant neoplasm papilla of Vater
     Dosage: CISPLATINE INFUUS / BRAND NAME NOT SPECIFIED
     Route: 065
     Dates: start: 20241018
  3. FUROSEMIDE [Concomitant]
     Active Substance: FUROSEMIDE
     Indication: Product used for unknown indication
     Dosage: DOSAGE: 1 MG/ML INFUSION FLUID;? INFVLST / BRAND NAME NOT SPECIFIED
     Route: 065

REACTIONS (5)
  - Hypervolaemia [Recovered/Resolved]
  - Anaemia [Recovering/Resolving]
  - Dyspnoea [Recovered/Resolved]
  - Weight decreased [Recovered/Resolved]
  - Oedema [Recovered/Resolved]
